FAERS Safety Report 23056408 (Version 1)
Quarter: 2023Q4

REPORT INFORMATION
  Report Type: Spontaneous
  Country: CH (occurrence: CH)
  Receive Date: 20231011
  Receipt Date: 20231011
  Transmission Date: 20240110
  Serious: Yes (Death, Other)
  Sender: FDA-Public Use
  Company Number: CH-009507513-2310CHE001476

PATIENT
  Age: 32 Year
  Sex: Female

DRUGS (1)
  1. KEYTRUDA [Suspect]
     Active Substance: PEMBROLIZUMAB
     Indication: Malignant melanoma stage III
     Dosage: 1 DOSAGE FORM, Q3W
     Dates: start: 20190624, end: 20200625

REACTIONS (1)
  - Abortion late [Fatal]

NARRATIVE: CASE EVENT DATE: 20230830
